FAERS Safety Report 6748775-0 (Version None)
Quarter: 2010Q2

REPORT INFORMATION
  Report Type: 
  Country: None (occurrence: None)
  Receive Date: 20100601
  Receipt Date: 20100519
  Transmission Date: 20101027
  Serious: Yes (Hospitalization)
  Sender: FDA-Public Use
  Company Number: PHHY2010US32749

PATIENT
  Sex: Female
  Weight: 37.9 kg

DRUGS (1)
  1. EXJADE [Suspect]
     Indication: SICKLE CELL ANAEMIA
     Dosage: 750 MG/DAY
     Route: 048
     Dates: start: 20100427

REACTIONS (1)
  - SPLENECTOMY [None]
